FAERS Safety Report 8315374-9 (Version None)
Quarter: 2012Q2

REPORT INFORMATION
  Report Type: 
  Country: None (occurrence: None)
  Receive Date: 20120426
  Receipt Date: 20120419
  Transmission Date: 20120825
  Serious: Yes (Hospitalization)
  Sender: FDA-Public Use
  Company Number: US-US-EMD SERONO, INC.-7127508

PATIENT
  Sex: Female

DRUGS (3)
  1. REBIF [Suspect]
     Route: 058
     Dates: start: 20120401
  2. ACETAMINOPHEN [Concomitant]
     Indication: PRODUCT USED FOR UNKNOWN INDICATION
  3. REBIF [Suspect]
     Indication: MULTIPLE SCLEROSIS
     Route: 058
     Dates: start: 20110404, end: 20120401

REACTIONS (3)
  - DIZZINESS [None]
  - CORONARY ARTERY OCCLUSION [None]
  - HYPERTENSION [None]
